FAERS Safety Report 4401590-5 (Version None)
Quarter: 2004Q3

REPORT INFORMATION
  Report Type: 
  Country: None (occurrence: None)
  Receive Date: 20040714
  Receipt Date: 20040701
  Transmission Date: 20050211
  Serious: Yes (Other)
  Sender: FDA-Public Use
  Company Number: 2004044547

PATIENT
  Age: 67 Year
  Sex: Female
  Weight: 67.1324 kg

DRUGS (3)
  1. LIPITOR [Suspect]
     Indication: BLOOD CHOLESTEROL INCREASED
     Dosage: ORAL
     Route: 048
     Dates: end: 20030901
  2. TAMOXIFEN CITRATE [Suspect]
     Indication: BREAST CANCER
  3. MESALAZINE (MESALAZINE) [Concomitant]

REACTIONS (11)
  - ABASIA [None]
  - BALANCE DISORDER [None]
  - BREAST CANCER [None]
  - BURNING SENSATION [None]
  - COLITIS ULCERATIVE [None]
  - CORNEAL DISORDER [None]
  - DYSGRAPHIA [None]
  - ERYTHEMA [None]
  - FALL [None]
  - NEUROPATHIC PAIN [None]
  - NEUROPATHY PERIPHERAL [None]
